FAERS Safety Report 4764147-2 (Version None)
Quarter: 2005Q3

REPORT INFORMATION
  Report Type: 
  Country: None (occurrence: None)
  Receive Date: 20050906
  Receipt Date: 20050616
  Transmission Date: 20060218
  Serious: No
  Sender: FDA-Public Use
  Company Number: 2005-BP-10226BP

PATIENT
  Age: 58 Year
  Sex: Female

DRUGS (3)
  1. SPIRIVA [Suspect]
     Indication: HYPERSENSITIVITY
     Dosage: 18 MCG (18 MCG, QD), IH
     Route: 055
     Dates: start: 20050501
  2. XANAX [Concomitant]
  3. SPIRIVA [Suspect]

REACTIONS (2)
  - AGEUSIA [None]
  - DRUG INEFFECTIVE [None]
